FAERS Safety Report 7051246-8 (Version None)
Quarter: 2010Q4

REPORT INFORMATION
  Report Type: 
  Country: None (occurrence: None)
  Receive Date: 20101018
  Receipt Date: 20101018
  Transmission Date: 20110411
  Serious: No
  Sender: FDA-Public Use
  Company Number: None

PATIENT
  Age: 61 Year
  Sex: Female
  Weight: 54 kg

DRUGS (3)
  1. VENOFER [Suspect]
     Indication: IRON DEFICIENCY
     Dosage: 400 MG Q WEEK IV
     Route: 042
     Dates: start: 20100915
  2. VENOFER [Suspect]
     Indication: IRON DEFICIENCY
     Dosage: 400 MG Q WEEK IV
     Route: 042
     Dates: start: 20100922
  3. VENOFER [Suspect]
     Indication: IRON DEFICIENCY
     Dosage: 400 MG Q WEEK IV
     Route: 042
     Dates: start: 20100929

REACTIONS (2)
  - OEDEMA PERIPHERAL [None]
  - URTICARIA [None]
